FAERS Safety Report 20090369 (Version 1)
Quarter: 2021Q4

REPORT INFORMATION
  Report Type: Spontaneous
  Country: US (occurrence: US)
  Receive Date: 20211119
  Receipt Date: 20211119
  Transmission Date: 20220303
  Serious: No
  Sender: FDA-Public Use
  Company Number: US-CIPLA LTD.-2021US06383

PATIENT

DRUGS (1)
  1. TAVABOROLE [Suspect]
     Active Substance: TAVABOROLE
     Indication: Onychomycosis
     Dosage: UNK, QD WITH DROPPER
     Route: 061
     Dates: start: 20210901

REACTIONS (2)
  - Off label use [Not Recovered/Not Resolved]
  - Product use in unapproved indication [Not Recovered/Not Resolved]

NARRATIVE: CASE EVENT DATE: 20210901
